FAERS Safety Report 9834572 (Version 2)
Quarter: 2014Q1

REPORT INFORMATION
  Report Type: Spontaneous
  Country: US (occurrence: US)
  Receive Date: 20140122
  Receipt Date: 20140122
  Transmission Date: 20141002
  Serious: Yes (Hospitalization, Other)
  Sender: FDA-Public Use
  Company Number: US-ACORDA-ACO_23015_2010

PATIENT
  Age: 52 Year
  Sex: Female
  Weight: 65.76 kg

DRUGS (6)
  1. AMPYRA [Suspect]
     Indication: GAIT DISTURBANCE
     Dosage: 10 MG, BID
     Route: 048
     Dates: start: 20100430, end: 20100526
  2. AMPYRA [Suspect]
     Dosage: 10 MG, QD
     Route: 048
     Dates: start: 2010
  3. KLONOPIN [Concomitant]
     Indication: MUSCLE SPASTICITY
     Dosage: 1 EVERY NIGHT
  4. DEPAKOTE [Concomitant]
     Indication: TRIGEMINAL NEURALGIA
     Dosage: 1 EVERY NIGHT
     Route: 048
  5. CYMBALTA [Concomitant]
     Indication: MULTIPLE SCLEROSIS
     Dosage: 1 EVERY MORNNG
  6. TECFIDERA [Concomitant]
     Indication: PRODUCT USED FOR UNKNOWN INDICATION
     Dosage: 240 MG, BID
     Route: 048
     Dates: start: 20130806

REACTIONS (5)
  - Myoclonus [Recovered/Resolved]
  - Clostridium difficile infection [Recovered/Resolved]
  - Panic attack [Recovered/Resolved]
  - Insomnia [Unknown]
  - Drug ineffective [None]
